FAERS Safety Report 25641568 (Version 2)
Quarter: 2025Q3

REPORT INFORMATION
  Report Type: Spontaneous
  Country: US (occurrence: US)
  Receive Date: 20250804
  Receipt Date: 20250924
  Transmission Date: 20251020
  Serious: No
  Sender: NOVARTIS
  Company Number: US-002147023-NVSC2025US121067

PATIENT
  Sex: Female

DRUGS (1)
  1. CANAKINUMAB [Suspect]
     Active Substance: CANAKINUMAB
     Indication: Hidradenitis
     Dosage: UNK, QMO
     Route: 065

REACTIONS (4)
  - Hidradenitis [Unknown]
  - Disease progression [Unknown]
  - Off label use [Unknown]
  - Therapeutic response shortened [Unknown]
